FAERS Safety Report 8128645-6 (Version None)
Quarter: 2012Q1

REPORT INFORMATION
  Report Type: 
  Country: None (occurrence: None)
  Receive Date: 20120210
  Receipt Date: 20111217
  Transmission Date: 20120608
  Serious: No
  Sender: FDA-Public Use
  Company Number: US-BRISTOL-MYERS SQUIBB COMPANY-16299935

PATIENT

DRUGS (1)
  1. ORENCIA [Suspect]
     Dosage: 1 DF = 6 VIALS:1 VIAL - LOT1K69193, EXP.DATE AUG2014

REACTIONS (1)
  - INCORRECT STORAGE OF DRUG [None]
